FAERS Safety Report 18932646 (Version 2)
Quarter: 2021Q1

REPORT INFORMATION
  Report Type: Spontaneous
  Country: FR (occurrence: FR)
  Receive Date: 20210224
  Receipt Date: 20210311
  Transmission Date: 20210420
  Serious: Yes (Hospitalization, Other)
  Sender: FDA-Public Use
  Company Number: FR-SA-2021SA058890

PATIENT
  Age: 43 Year
  Sex: Male
  Weight: 79 kg

DRUGS (2)
  1. ARAVA [Suspect]
     Active Substance: LEFLUNOMIDE
     Indication: CONNECTIVE TISSUE DISORDER
     Dosage: 1 DF, QD
     Route: 048
     Dates: start: 2005, end: 20151112
  2. CORTANCYL [Concomitant]
     Active Substance: PREDNISONE
     Indication: CONNECTIVE TISSUE DISORDER
     Dosage: 7.5 MG, QD
     Route: 048
     Dates: start: 200007

REACTIONS (2)
  - Pulmonary arterial hypertension [Not Recovered/Not Resolved]
  - Condition aggravated [Not Recovered/Not Resolved]

NARRATIVE: CASE EVENT DATE: 200710
